FAERS Safety Report 6024755-8 (Version None)
Quarter: 2008Q4

REPORT INFORMATION
  Report Type: 
  Country: None (occurrence: None)
  Receive Date: 20081231
  Receipt Date: 20081224
  Transmission Date: 20090506
  Serious: Yes (Other)
  Sender: FDA-Public Use
  Company Number: JP-BIOGENIDEC-2008BI027093

PATIENT
  Sex: Female

DRUGS (1)
  1. AVONEX [Suspect]
     Indication: RELAPSING-REMITTING MULTIPLE SCLEROSIS
     Route: 030
     Dates: start: 20080218

REACTIONS (5)
  - ALANINE AMINOTRANSFERASE ABNORMAL [None]
  - ANOREXIA [None]
  - ASPARTATE AMINOTRANSFERASE ABNORMAL [None]
  - MALAISE [None]
  - PYREXIA [None]
